FAERS Safety Report 9775382 (Version 2)
Quarter: 2014Q1

REPORT INFORMATION
  Report Type: Spontaneous
  Country: US (occurrence: US)
  Receive Date: 20131220
  Receipt Date: 20140127
  Transmission Date: 20141002
  Serious: No
  Sender: FDA-Public Use
  Company Number: US-009507513-1312USA008806

PATIENT
  Age: 50 Year
  Sex: Female

DRUGS (7)
  1. DULERA [Suspect]
     Indication: ASTHMA
     Dosage: 100/5MCG, BID
     Route: 055
     Dates: start: 201311, end: 20131218
  2. SINGULAIR [Concomitant]
  3. VENTOLIN HFA [Concomitant]
     Dosage: UNK
  4. LORAZEPAM [Concomitant]
  5. BUTALBITAL [Concomitant]
  6. FIORICET [Concomitant]
  7. ALLEGRA-D [Concomitant]

REACTIONS (6)
  - Alopecia [Not Recovered/Not Resolved]
  - Depressed mood [Not Recovered/Not Resolved]
  - Lung disorder [Not Recovered/Not Resolved]
  - Candida infection [Not Recovered/Not Resolved]
  - Fatigue [Not Recovered/Not Resolved]
  - Somnolence [Not Recovered/Not Resolved]
